FAERS Safety Report 4440870-4 (Version None)
Quarter: 2004Q3

REPORT INFORMATION
  Report Type: 
  Country: None (occurrence: None)
  Receive Date: 20040728
  Receipt Date: 20040427
  Transmission Date: 20050211
  Serious: No
  Sender: FDA-Public Use
  Company Number: USA031254422

PATIENT
  Age: 8 Year
  Sex: Male
  Weight: 25 kg

DRUGS (6)
  1. STRATTERA [Suspect]
     Indication: ATTENTION DEFICIT/HYPERACTIVITY DISORDER
     Dosage: 10 MG/3 DAY
     Dates: start: 20030401
  2. SINGULAIR [Concomitant]
  3. ZYRTEC [Concomitant]
  4. ADDERALL 10 [Concomitant]
  5. RHINOCORT [Concomitant]
  6. ALBUTEROL [Concomitant]

REACTIONS (10)
  - ANXIETY [None]
  - ASTHMA [None]
  - DECREASED APPETITE [None]
  - ERUCTATION [None]
  - FEAR [None]
  - FLATULENCE [None]
  - MUSCLE CRAMP [None]
  - NERVOUSNESS [None]
  - PARANOIA [None]
  - VOMITING [None]
